FAERS Safety Report 23676062 (Version 2)
Quarter: 2024Q2

REPORT INFORMATION
  Report Type: Report from Study
  Country: CA (occurrence: CA)
  Receive Date: 20240327
  Receipt Date: 20240418
  Transmission Date: 20240716
  Serious: Yes (Death, Other)
  Sender: FDA-Public Use
  Company Number: CA-002147023-NVSC2022CA136471

PATIENT
  Sex: Male
  Weight: 117.48 kg

DRUGS (1)
  1. PIRFENIDONE [Suspect]
     Active Substance: PIRFENIDONE
     Indication: Idiopathic pulmonary fibrosis
     Dosage: UNK
     Route: 048
     Dates: start: 20211016

REACTIONS (2)
  - Death [Fatal]
  - Restrictive pulmonary disease [Unknown]
